FAERS Safety Report 17806819 (Version 1)
Quarter: 2020Q2

REPORT INFORMATION
  Report Type: Spontaneous
  Country: US (occurrence: US)
  Receive Date: 20200519
  Receipt Date: 20200519
  Transmission Date: 20200714
  Serious: No
  Sender: FDA-Public Use
  Company Number: None

PATIENT
  Age: 4 Year
  Sex: Female

DRUGS (3)
  1. SILDENAFIL 10MG/ML SUSP (112ML) [Suspect]
     Active Substance: SILDENAFIL
     Dosage: ?          OTHER DOSE:1.2ML (12MG);OTHER ROUTE:VIA G-TUBE?
     Dates: start: 20190402
  2. TOBRAMYCIN  300MG/5ML 20ML NEB [Suspect]
     Active Substance: TOBRAMYCIN
     Dosage: ?          OTHER DOSE:5ML (300MG;OTHER FREQUENCY:BID X 14D;?
     Route: 055
     Dates: start: 20200305
  3. SINGULAIR [Concomitant]
     Active Substance: MONTELUKAST SODIUM

REACTIONS (1)
  - Tracheal haemorrhage [None]

NARRATIVE: CASE EVENT DATE: 20200515
